FAERS Safety Report 21381530 (Version 1)
Quarter: 2022Q3

REPORT INFORMATION
  Report Type: Spontaneous
  Country: None (occurrence: RO)
  Receive Date: 20220927
  Receipt Date: 20220927
  Transmission Date: 20221026
  Serious: Yes (Death, Other)
  Sender: FDA-Public Use
  Company Number: RO-B.Braun Medical Inc.-2133228

PATIENT
  Age: 79 Year
  Sex: Female
  Weight: 80 kg

DRUGS (11)
  1. DEXTROSE [Suspect]
     Active Substance: DEXTROSE
  2. DEXAMETHASONE [Concomitant]
     Active Substance: DEXAMETHASONE
  3. METOPROLOL [Concomitant]
     Active Substance: METOPROLOL
  4. PYRIDOXINE HYDROCHLORIDE [Concomitant]
     Active Substance: PYRIDOXINE HYDROCHLORIDE
  5. LEVETIRACETAM [Concomitant]
     Active Substance: LEVETIRACETAM
  6. ASCORBIC ACID [Concomitant]
     Active Substance: ASCORBIC ACID
  7. thiamine, [Concomitant]
  8. Diurex (furosemide, spironolactone) [Concomitant]
  9. NICERGOLINE [Concomitant]
     Active Substance: NICERGOLINE
  10. RIVOTRIL [Concomitant]
     Active Substance: CLONAZEPAM
  11. LEVOFLOXACIN [Suspect]
     Active Substance: LEVOFLOXACIN

REACTIONS (3)
  - Death [Fatal]
  - Coma [Fatal]
  - Hyperglycaemia [Fatal]
